FAERS Safety Report 23849579 (Version 1)
Quarter: 2024Q2

REPORT INFORMATION
  Report Type: Spontaneous
  Country: JP (occurrence: JP)
  Receive Date: 20240513
  Receipt Date: 20240513
  Transmission Date: 20240716
  Serious: Yes (Death)
  Sender: FDA-Public Use
  Company Number: JP-BAYER-2024A069979

PATIENT
  Age: 53 Year
  Sex: Female

DRUGS (1)
  1. XARELTO [Suspect]
     Active Substance: RIVAROXABAN
     Indication: Pulmonary embolism
     Dosage: DAILY DOSE 15 MG
     Route: 048

REACTIONS (4)
  - Neoplasm malignant [Fatal]
  - Condition aggravated [Unknown]
  - Pleural effusion [Unknown]
  - Respiratory disorder [Unknown]
